FAERS Safety Report 14200385 (Version 3)
Quarter: 2018Q1

REPORT INFORMATION
  Report Type: Spontaneous
  Country: IT (occurrence: IT)
  Receive Date: 20171117
  Receipt Date: 20180103
  Transmission Date: 20180508
  Serious: Yes (Other)
  Sender: FDA-Public Use
  Company Number: IT-PFIZER INC-2017489558

PATIENT
  Age: 15 Year
  Sex: Female
  Weight: 85 kg

DRUGS (18)
  1. ALLOPURINOL. [Concomitant]
     Active Substance: ALLOPURINOL
     Dosage: 300 MG, UNK
     Dates: start: 20170526, end: 20170531
  2. ETOPOSIDE. [Suspect]
     Active Substance: ETOPOSIDE
     Indication: ALLOGENIC BONE MARROW TRANSPLANTATION THERAPY
     Dosage: 400 MG, DAILY
     Route: 042
     Dates: start: 20170526, end: 20170529
  3. MAGNESIUM CHLORIDE. [Concomitant]
     Active Substance: MAGNESIUM CHLORIDE
     Dosage: 10 ML, QD (DAILY)
     Dates: start: 20170525
  4. FOTEMUSTINE [Suspect]
     Active Substance: FOTEMUSTINE
     Indication: ALLOGENIC BONE MARROW TRANSPLANTATION THERAPY
     Dosage: 300 MG, DAILY
     Route: 042
     Dates: start: 20170524, end: 20170525
  5. EMEND [Concomitant]
     Active Substance: APREPITANT
     Dosage: UNK
  6. CIPROXIN /00697201/ [Concomitant]
     Active Substance: CIPROFLOXACIN
     Dosage: 1000 MG, QD (DAILY)
     Route: 048
     Dates: start: 20170523, end: 20170606
  7. RANITIDINE. [Concomitant]
     Active Substance: RANITIDINE
     Dosage: 150 MG, QD (DAILY)
     Route: 042
     Dates: start: 20170523, end: 20170602
  8. FLUCONAZOLE. [Concomitant]
     Active Substance: FLUCONAZOLE
     Dosage: 400 MG, QD (DAILY)
     Route: 042
     Dates: start: 20170523, end: 20170606
  9. ALKERAN [Suspect]
     Active Substance: MELPHALAN
     Indication: ALLOGENIC BONE MARROW TRANSPLANTATION THERAPY
     Dosage: 280 MG, TOTAL
     Route: 042
     Dates: start: 20170530, end: 20170530
  10. ALOXI [Concomitant]
     Active Substance: PALONOSETRON HYDROCHLORIDE
     Dosage: 1 DF, QD (DAILY)
     Route: 042
     Dates: start: 20170524, end: 20170527
  11. ZOVIRAX [Concomitant]
     Active Substance: ACYCLOVIR
     Dosage: 2400 MG, QD (DAILY)
     Route: 048
     Dates: start: 20170523, end: 20170529
  12. HEPARIN SODIUM. [Concomitant]
     Active Substance: HEPARIN SODIUM
     Dosage: 8500 IU, QD (DAILY)
     Route: 058
     Dates: start: 20170523, end: 20170626
  13. NYSTATIN. [Concomitant]
     Active Substance: NYSTATIN
     Dosage: 30 ML, QD (DAILY)
     Route: 048
     Dates: start: 20170523, end: 20170623
  14. EMEND [Concomitant]
     Active Substance: APREPITANT
     Dosage: UNK
     Dates: start: 20170523, end: 20170527
  15. POTASSIUM CHLORIDE. [Concomitant]
     Active Substance: POTASSIUM CHLORIDE
     Dosage: 15 UNK, QD (DAILY)
     Dates: start: 20170524
  16. CYTARABINE. [Suspect]
     Active Substance: CYTARABINE
     Indication: ALLOGENIC BONE MARROW TRANSPLANTATION THERAPY
     Dosage: 400 MG, DAILY
     Dates: start: 20170526
  17. LASIX [Concomitant]
     Active Substance: FUROSEMIDE
     Dosage: 120 MG, QD ( DAILY)
     Route: 042
     Dates: start: 20170523, end: 20170620
  18. DEURSIL [Concomitant]
     Active Substance: URSODIOL
     Dosage: 600 MG, QD (DAILY)
     Route: 048
     Dates: start: 20170523, end: 20170623

REACTIONS (4)
  - Tonsillar haemorrhage [Unknown]
  - Mucosal inflammation [Recovering/Resolving]
  - Diarrhoea [Unknown]
  - Faeces soft [Recovering/Resolving]

NARRATIVE: CASE EVENT DATE: 20170531
